FAERS Safety Report 21070134 (Version 1)
Quarter: 2022Q3

REPORT INFORMATION
  Report Type: Report from Study
  Country: CA (occurrence: CA)
  Receive Date: 20220712
  Receipt Date: 20220712
  Transmission Date: 20221026
  Serious: Yes (Hospitalization)
  Sender: FDA-Public Use
  Company Number: CA-NOVARTISPH-NVSC2021CA128350

PATIENT
  Sex: Female

DRUGS (11)
  1. ILARIS [Suspect]
     Active Substance: CANAKINUMAB
     Indication: Still^s disease
     Dosage: 300 MG, QMO
     Route: 058
     Dates: start: 20210118
  2. ILARIS [Suspect]
     Active Substance: CANAKINUMAB
     Dosage: UNK (DRUG STOPPED AT 18 NOV)
     Route: 058
  3. KINERET [Concomitant]
     Active Substance: ANAKINRA
     Indication: Product used for unknown indication
     Dosage: UNK, QD
     Route: 058
     Dates: start: 202003
  4. PREDNISONE [Concomitant]
     Active Substance: PREDNISONE
     Indication: Product used for unknown indication
     Dosage: UNK UNK, QD
     Route: 048
     Dates: start: 202003
  5. NAPROXEN [Concomitant]
     Active Substance: NAPROXEN
     Indication: Product used for unknown indication
     Dosage: 500 MG, BID
     Route: 065
  6. ACTONEL [Concomitant]
     Active Substance: RISEDRONATE SODIUM
     Indication: Product used for unknown indication
     Dosage: UNK
     Route: 065
     Dates: end: 2021
  7. SEPTRA [Concomitant]
     Active Substance: SULFAMETHOXAZOLE\TRIMETHOPRIM
     Indication: Product used for unknown indication
     Dosage: UNK
     Route: 065
  8. PANTOPRAZOLE SODIUM [Concomitant]
     Active Substance: PANTOPRAZOLE SODIUM
     Indication: Product used for unknown indication
     Dosage: UNK
     Route: 048
  9. BETAMETHASONE VALERATE [Concomitant]
     Active Substance: BETAMETHASONE VALERATE
     Indication: Product used for unknown indication
     Dosage: UNK UNK, PRN
     Route: 061
  10. METHOTREXATE [Concomitant]
     Active Substance: METHOTREXATE
     Indication: Product used for unknown indication
     Dosage: UNK
     Route: 065
     Dates: start: 2010
  11. UNISOM SLEEPTABS [Concomitant]
     Active Substance: DOXYLAMINE SUCCINATE
     Indication: Product used for unknown indication
     Dosage: UNK UNK, PRN
     Route: 048

REACTIONS (18)
  - Myopericarditis [Unknown]
  - Palpitations [Not Recovered/Not Resolved]
  - Hypoaesthesia [Unknown]
  - Weight increased [Unknown]
  - Skin plaque [Unknown]
  - Bone pain [Unknown]
  - Tenderness [Unknown]
  - Sleep disorder [Unknown]
  - Joint stiffness [Unknown]
  - Arthralgia [Unknown]
  - Vertigo [Unknown]
  - Joint swelling [Recovered/Resolved]
  - Chest pain [Not Recovered/Not Resolved]
  - Rash pruritic [Not Recovered/Not Resolved]
  - Chest discomfort [Not Recovered/Not Resolved]
  - Heart rate irregular [Not Recovered/Not Resolved]
  - Injection site pain [Not Recovered/Not Resolved]
  - Product dose omission issue [Unknown]
